FAERS Safety Report 11993050 (Version 1)
Quarter: 2016Q1

REPORT INFORMATION
  Report Type: Spontaneous
  Country: US (occurrence: None)
  Receive Date: 20160202
  Receipt Date: 20160202
  Transmission Date: 20160526
  Serious: No
  Sender: FDA-Public Use
  Company Number: None

PATIENT
  Age: 36 Year
  Sex: Male
  Weight: 63.5 kg

DRUGS (8)
  1. PROPANOLOL 40 MG [Suspect]
     Active Substance: PROPRANOLOL HYDROCHLORIDE
     Indication: HYPERTENSION
     Dosage: 40 MG, TWICE A DAILY, TAKEN BY MOUTH
  2. ADDERALLL [Concomitant]
  3. PROPANOLOL 40 MG [Suspect]
     Active Substance: PROPRANOLOL HYDROCHLORIDE
     Indication: HEART RATE
     Dosage: 40 MG, TWICE A DAILY, TAKEN BY MOUTH
  4. VITA D [Concomitant]
  5. LAMOTRIGINE. [Concomitant]
     Active Substance: LAMOTRIGINE
  6. FISH OIL [Concomitant]
     Active Substance: FISH OIL
  7. CLONAZEPAM. [Concomitant]
     Active Substance: CLONAZEPAM
  8. STRIBILD [Concomitant]
     Active Substance: COBICISTAT\ELVITEGRAVIR\EMTRICITABINE\TENOFOVIR DISOPROXIL FUMARATE

REACTIONS (1)
  - Peyronie^s disease [None]

NARRATIVE: CASE EVENT DATE: 20151212
